FAERS Safety Report 12524201 (Version 1)
Quarter: 2016Q3

REPORT INFORMATION
  Report Type: Spontaneous
  Country: DE (occurrence: DE)
  Receive Date: 20160704
  Receipt Date: 20160704
  Transmission Date: 20161109
  Serious: Yes (Congenital Anomaly, Other)
  Sender: FDA-Public Use
  Company Number: DE-DRREDDYS-GER/GER/16/0080982

PATIENT
  Age: 1 Day
  Sex: Male
  Weight: 3.49 kg

DRUGS (3)
  1. VENLAFAXINE [Suspect]
     Active Substance: VENLAFAXINE HYDROCHLORIDE
     Indication: DEPRESSION
     Dosage: 225 MG/D UNTIL GW 34+0, GW 34+1-35+0: 187.5 MG/D; GW 35+1-37+0: 150 MG/D; SINCE GW 37+1
     Route: 064
     Dates: start: 20150118, end: 20151022
  2. SEROQUEL [Suspect]
     Active Substance: QUETIAPINE FUMARATE
     Indication: DEPRESSION
     Route: 064
     Dates: start: 20150118, end: 20151022
  3. DAS GESUNDE PLUS A-Z MAMA [Concomitant]
     Indication: PROPHYLAXIS OF NEURAL TUBE DEFECT
     Route: 064
     Dates: start: 20150217, end: 20151020

REACTIONS (5)
  - Foetal exposure during pregnancy [Unknown]
  - Hypotonia [Unknown]
  - Penoscrotal fusion [Not Recovered/Not Resolved]
  - Ear infection [Recovered/Resolved]
  - Breech presentation [Unknown]

NARRATIVE: CASE EVENT DATE: 20151022
